FAERS Safety Report 8306460 (Version 3)
Quarter: 2012Q4

REPORT INFORMATION
  Report Type: 
  Country: US (occurrence: US)
  Receive Date: 20111222
  Receipt Date: 20121116
  Transmission Date: 20130627
  Serious: No
  Sender: FDA-Public Use
  Company Number: US-BIOGENIDEC-2011BI047743

PATIENT
  Age: 31 Year
  Sex: Male

DRUGS (3)
  1. TYSABRI [Suspect]
     Indication: MULTIPLE SCLEROSIS
     Route: 042
     Dates: start: 20080429, end: 20111108
  2. AVONEX [Concomitant]
     Indication: MULTIPLE SCLEROSIS
     Route: 030
     Dates: start: 20051223
  3. GILENYA [Concomitant]
     Indication: MULTIPLE SCLEROSIS

REACTIONS (6)
  - Musculoskeletal disorder [Not Recovered/Not Resolved]
  - CSF white blood cell count increased [Unknown]
  - Hypoaesthesia [Recovered/Resolved]
  - Sinusitis [Recovered/Resolved]
  - Drug specific antibody present [Recovered/Resolved]
  - Dyspnoea [Recovered/Resolved]
